FAERS Safety Report 26139484 (Version 1)
Quarter: 2025Q4

REPORT INFORMATION
  Report Type: Spontaneous
  Country: US (occurrence: None)
  Receive Date: 20251210
  Receipt Date: 20251210
  Transmission Date: 20260117
  Serious: Yes (Hospitalization)
  Sender: FDA-CTU
  Company Number: None

PATIENT
  Age: 58 Year
  Sex: Male
  Weight: 116.2 kg

DRUGS (2)
  1. XELODA [Suspect]
     Active Substance: CAPECITABINE
     Dates: end: 20251119
  2. ELOXATIN [Suspect]
     Active Substance: OXALIPLATIN
     Dates: start: 20251113

REACTIONS (10)
  - Mesenteric vein thrombosis [None]
  - Portal vein thrombosis [None]
  - Pneumonia [None]
  - Sputum culture positive [None]
  - Klebsiella infection [None]
  - Sepsis [None]
  - Abdominal distension [None]
  - Depression [None]
  - Intestinal ischaemia [None]
  - Pneumonia [None]

NARRATIVE: CASE EVENT DATE: 20251120
